FAERS Safety Report 6820643-5 (Version None)
Quarter: 2010Q3

REPORT INFORMATION
  Report Type: 
  Country: None (occurrence: None)
  Receive Date: 20100707
  Receipt Date: 20100604
  Transmission Date: 20110219
  Serious: Yes (Hospitalization)
  Sender: FDA-Public Use
  Company Number: US-BIOGENIDEC-2010BI005178

PATIENT
  Sex: Female

DRUGS (1)
  1. AVONEX [Suspect]
     Indication: MULTIPLE SCLEROSIS
     Route: 030
     Dates: start: 20080331

REACTIONS (5)
  - GAIT DISTURBANCE [None]
  - HEMIPARESIS [None]
  - OSTEOARTHRITIS [None]
  - SPINAL COLUMN STENOSIS [None]
  - STRESS [None]
